FAERS Safety Report 10053359 (Version 3)
Quarter: 2014Q3

REPORT INFORMATION
  Report Type: Spontaneous
  Country: GB (occurrence: GB)
  Receive Date: 20140402
  Receipt Date: 20140811
  Transmission Date: 20150326
  Serious: Yes (Death)
  Sender: FDA-Public Use
  Company Number: GB-TEVA-470124ISR

PATIENT
  Age: 72 Year
  Sex: Male

DRUGS (11)
  1. SIMVASTATIN. [Concomitant]
     Active Substance: SIMVASTATIN
     Indication: PROPHYLAXIS
     Dosage: 40 MILLIGRAM DAILY;
     Route: 048
     Dates: start: 20100908, end: 20120122
  2. LCZ696 FREE BASE [Suspect]
     Active Substance: INVESTIGATIONAL PRODUCT
     Indication: CARDIAC FAILURE CHRONIC
  3. BISOPROLOL [Concomitant]
     Active Substance: BISOPROLOL
     Indication: CARDIAC FAILURE
     Dosage: 2.5 MILLIGRAM DAILY;
     Route: 048
     Dates: start: 20100908, end: 20120122
  4. AZATHIOPRINE. [Suspect]
     Active Substance: AZATHIOPRINE
  5. CLOPIDOGREL [Concomitant]
     Active Substance: CLOPIDOGREL BISULFATE
     Indication: PROPHYLAXIS
     Dosage: 75 MILLIGRAM DAILY;
     Route: 048
     Dates: start: 20100908, end: 20120122
  6. EPLERENONE. [Concomitant]
     Active Substance: EPLERENONE
     Indication: CARDIAC FAILURE
     Dosage: 50 MILLIGRAM DAILY;
     Route: 048
     Dates: start: 20110707, end: 20120122
  7. METHOTREXATE [Concomitant]
     Active Substance: METHOTREXATE
  8. LCZ696 FREE BASE [Suspect]
     Active Substance: INVESTIGATIONAL PRODUCT
     Indication: CARDIAC FAILURE CHRONIC
     Dosage: DOUBLE BLIND
     Route: 048
     Dates: start: 20110126, end: 20120122
  9. BUMETANIDE. [Concomitant]
     Active Substance: BUMETANIDE
     Indication: CARDIAC FAILURE
     Dosage: .5 MILLIGRAM DAILY;
     Route: 048
     Dates: start: 20100910, end: 20120122
  10. ENALAPRIL [Suspect]
     Active Substance: ENALAPRIL
     Indication: CARDIAC FAILURE CHRONIC
     Dosage: 20 MILLIGRAM DAILY;
     Route: 048
     Dates: start: 20110126, end: 20120122
  11. TAMSULOSIN [Concomitant]
     Active Substance: TAMSULOSIN
     Indication: POLLAKIURIA
     Dosage: 400 MILLIGRAM DAILY;
     Route: 048
     Dates: start: 20041110, end: 20120122

REACTIONS (1)
  - Myocardial ischaemia [Fatal]

NARRATIVE: CASE EVENT DATE: 20120123
